FAERS Safety Report 17806183 (Version 1)
Quarter: 2020Q2

REPORT INFORMATION
  Report Type: Spontaneous
  Country: DE (occurrence: DE)
  Receive Date: 20200520
  Receipt Date: 20200520
  Transmission Date: 20200714
  Serious: Yes (Hospitalization, Other)
  Sender: FDA-Public Use
  Company Number: DE-TEVA-2020-DE-1236185

PATIENT
  Age: 63 Year
  Sex: Female

DRUGS (5)
  1. VALSARTAN COMP. CT 320/12.5 MG FILMTABLETTEN [Suspect]
     Active Substance: HYDROCHLOROTHIAZIDE\VALSARTAN
     Indication: HYPERTENSION
     Dosage: 1 DF CONTAINS 320 MG VALSARTAN AND 12.5 MG HYDROCHLOROTHIAZIDE
     Dates: start: 201206, end: 201209
  2. VALSARTAN COMP. ABZ 320 MG/12,5 MG FILMTABLETTEN [Suspect]
     Active Substance: HYDROCHLOROTHIAZIDE\VALSARTAN
     Indication: HYPERTENSION
     Dosage: 1 DF CONTAINS 320 MG VALSARTAN AND 12.5 MG HYDROCHLOROTHIAZIDE
     Route: 048
     Dates: start: 201412, end: 201807
  3. VALSARTAN ACTAVIS COMP. 320MG/12.5 MG [Suspect]
     Active Substance: HYDROCHLOROTHIAZIDE\VALSARTAN
     Dates: start: 201211, end: 201406
  4. VALSACOR COMP. 320 MG/12.5 MG [Suspect]
     Active Substance: HYDROCHLOROTHIAZIDE\VALSARTAN
     Dates: start: 201802
  5. VALSARTAN COMP. HEUMANN 160 MG/12.5 MG [Suspect]
     Active Substance: HYDROCHLOROTHIAZIDE\VALSARTAN
     Indication: HYPERTENSION
     Dates: start: 201209, end: 201211

REACTIONS (6)
  - Bladder transitional cell carcinoma recurrent [Unknown]
  - Exercise tolerance decreased [Unknown]
  - Fear of disease [Unknown]
  - Bladder transitional cell carcinoma stage II [Unknown]
  - Emotional distress [Unknown]
  - Product impurity [Unknown]

NARRATIVE: CASE EVENT DATE: 201510
